FAERS Safety Report 14577579 (Version 1)
Quarter: 2018Q1

REPORT INFORMATION
  Report Type: Spontaneous
  Country: ES (occurrence: ES)
  Receive Date: 20180227
  Receipt Date: 20180227
  Transmission Date: 20180509
  Serious: Yes (Other)
  Sender: FDA-Public Use
  Company Number: ES-PFIZER INC-2018081794

PATIENT
  Age: 78 Year
  Sex: Female

DRUGS (1)
  1. VINCRISTINA PFIZER [Suspect]
     Active Substance: VINCRISTINE
     Indication: LYMPHOMA
     Dosage: 1 DF, CYCLIC (EVERY 21 DAYS/2 CYCLES)
     Route: 042
     Dates: start: 20171222

REACTIONS (2)
  - Paraesthesia [Not Recovered/Not Resolved]
  - Neuropathy peripheral [Not Recovered/Not Resolved]

NARRATIVE: CASE EVENT DATE: 20180122
